FAERS Safety Report 12457430 (Version 1)
Quarter: 2016Q2

REPORT INFORMATION
  Report Type: Spontaneous
  Country: DE (occurrence: DE)
  Receive Date: 20160610
  Receipt Date: 20160610
  Transmission Date: 20160815
  Serious: Yes (Other)
  Sender: FDA-Public Use
  Company Number: DE-MYLANLABS-2016M1024173

PATIENT

DRUGS (12)
  1. ARIPIPRAZOLE. [Interacting]
     Active Substance: ARIPIPRAZOLE
     Dosage: 5MG/DAY
     Route: 048
     Dates: start: 20150803, end: 20150928
  2. ARIPIPRAZOLE. [Interacting]
     Active Substance: ARIPIPRAZOLE
     Dosage: 400 MG, 28D CYCLE
     Route: 030
     Dates: start: 20150928
  3. ARIPIPRAZOLE. [Interacting]
     Active Substance: ARIPIPRAZOLE
     Dosage: 10MG/DAY; CHANGED TO 5MG/DAY
     Route: 048
     Dates: start: 20150713, end: 20150802
  4. SAQUINAVIR [Interacting]
     Active Substance: SAQUINAVIR
     Indication: ANTIRETROVIRAL THERAPY
     Route: 065
     Dates: start: 2005
  5. LOPINAVIR/RITONAVIR [Suspect]
     Active Substance: LOPINAVIR\RITONAVIR
     Indication: ANTIRETROVIRAL THERAPY
     Dosage: 100/400MG TWICE DAILY
     Route: 065
     Dates: start: 2005
  6. ARIPIPRAZOLE. [Interacting]
     Active Substance: ARIPIPRAZOLE
     Dosage: 5MG/DAY; CHANGED TO 10MG/DAY
     Route: 048
     Dates: start: 20150705, end: 20150712
  7. ARIPIPRAZOLE. [Interacting]
     Active Substance: ARIPIPRAZOLE
     Dosage: CHANGED TO 400MG EVERY 28 DAYS
     Route: 030
     Dates: start: 20150803
  8. ARIPIPRAZOLE. [Interacting]
     Active Substance: ARIPIPRAZOLE
     Dosage: 10MG/DAY; CHANGED TO 5MG/DAY
     Route: 048
     Dates: start: 20150621, end: 20150705
  9. ARIPIPRAZOLE. [Interacting]
     Active Substance: ARIPIPRAZOLE
     Dosage: CHANGED TO 300MG FOR SECOND AND THIRD INJECTION
     Route: 030
     Dates: start: 20150706
  10. OMEPRAZOLE. [Interacting]
     Active Substance: OMEPRAZOLE
     Indication: PRODUCT USED FOR UNKNOWN INDICATION
     Route: 065
  11. ARIPIPRAZOLE. [Interacting]
     Active Substance: ARIPIPRAZOLE
     Indication: GENERALISED ANXIETY DISORDER
     Dosage: 5MG ONCE A DAY; CHANGED TO 10MG/DAY
     Route: 048
     Dates: start: 20150606, end: 20150620
  12. SILYBUM MARIANUM [Concomitant]
     Route: 065

REACTIONS (2)
  - Drug interaction [Recovered/Resolved]
  - Bipolar disorder [Unknown]
